FAERS Safety Report 10202764 (Version 1)
Quarter: 2014Q2

REPORT INFORMATION
  Report Type: Spontaneous
  Country: FR (occurrence: FR)
  Receive Date: 20140528
  Receipt Date: 20140528
  Transmission Date: 20141212
  Serious: Yes (Death, Hospitalization)
  Sender: FDA-Public Use
  Company Number: FR-DSJP-DSE-2014-109054

PATIENT
  Sex: 0

DRUGS (1)
  1. COOLMETEC 40 MG/ 12.5 MG [Suspect]
     Indication: HYPERTENSION
     Dosage: 40/12.5 MG, QD
     Route: 048

REACTIONS (4)
  - Carcinoid tumour [Fatal]
  - Gastrointestinal disorder [Fatal]
  - Weight decreased [Fatal]
  - Diarrhoea [Fatal]
